FAERS Safety Report 5901570-4 (Version None)
Quarter: 2008Q3

REPORT INFORMATION
  Report Type: 
  Country: None (occurrence: None)
  Receive Date: 20080929
  Receipt Date: 20080917
  Transmission Date: 20090109
  Serious: Yes (Hospitalization)
  Sender: FDA-Public Use
  Company Number: FR-WYE-H06052808

PATIENT
  Age: 74 Year
  Sex: Female

DRUGS (2)
  1. INIPOMP [Suspect]
     Dosage: UNKNOWN
     Route: 048
  2. TAREG [Concomitant]
     Dosage: UNKNOWN
     Route: 048

REACTIONS (1)
  - HYPONATRAEMIA [None]
